FAERS Safety Report 11923200 (Version 2)
Quarter: 2016Q1

REPORT INFORMATION
  Report Type: Spontaneous
  Country: PL (occurrence: PL)
  Receive Date: 20160118
  Receipt Date: 20160125
  Transmission Date: 20160526
  Serious: Yes (Other)
  Sender: FDA-Public Use
  Company Number: PL-ROCHE-1693959

PATIENT
  Sex: Male

DRUGS (1)
  1. TAMIFLU [Suspect]
     Active Substance: OSELTAMIVIR PHOSPHATE
     Indication: PROPHYLAXIS
     Route: 065
     Dates: start: 201509, end: 201509

REACTIONS (3)
  - Gastroenteritis viral [Unknown]
  - Eye disorder [Unknown]
  - Hernia [Unknown]

NARRATIVE: CASE EVENT DATE: 201509
